FAERS Safety Report 7483195-5 (Version None)
Quarter: 2011Q2

REPORT INFORMATION
  Report Type: 
  Country: None (occurrence: None)
  Receive Date: 20110516
  Receipt Date: 20110504
  Transmission Date: 20111010
  Serious: Yes (Other)
  Sender: FDA-Public Use
  Company Number: IT-RB-007765-09

PATIENT
  Age: 30 Year
  Sex: Male

DRUGS (2)
  1. SUBUTEX [Suspect]
     Indication: DRUG DEPENDENCE
     Route: 060
     Dates: start: 20010320, end: 20010609
  2. MINIAS [Suspect]
     Indication: ILL-DEFINED DISORDER
     Dosage: DOSING INFORMATION UNKNOWN.
     Route: 048

REACTIONS (1)
  - GYNAECOMASTIA [None]
